FAERS Safety Report 6183512-2 (Version None)
Quarter: 2009Q2

REPORT INFORMATION
  Report Type: 
  Country: None (occurrence: None)
  Receive Date: 20090506
  Receipt Date: 20090420
  Transmission Date: 20091009
  Serious: Yes (Hospitalization)
  Sender: FDA-Public Use
  Company Number: 2009-193822-NL

PATIENT
  Age: 29 Year
  Sex: Female
  Weight: 99.8 kg

DRUGS (3)
  1. NUVARING [Suspect]
     Indication: CONTRACEPTION
     Dosage: 3 WEEKS IN, 1 WEEK OUT
     Dates: start: 20050201, end: 20060701
  2. IBUPROFEN [Concomitant]
  3. CLARITIN [Concomitant]

REACTIONS (10)
  - DEEP VEIN THROMBOSIS [None]
  - ENDOMETRIOSIS [None]
  - FLANK PAIN [None]
  - ILIAC ARTERY STENOSIS [None]
  - MEAN CELL VOLUME DECREASED [None]
  - MICROCYTOSIS [None]
  - NAUSEA [None]
  - PHLEBITIS SUPERFICIAL [None]
  - PYREXIA [None]
  - VOMITING [None]
